FAERS Safety Report 6089780-X (Version None)
Quarter: 2009Q1

REPORT INFORMATION
  Report Type: 
  Country: None (occurrence: None)
  Receive Date: 20090220
  Receipt Date: 20090209
  Transmission Date: 20090719
  Serious: Yes (Hospitalization)
  Sender: FDA-Public Use
  Company Number: 231484K09USA

PATIENT
  Age: 53 Year
  Sex: Female

DRUGS (1)
  1. REBIF [Suspect]
     Indication: MULTIPLE SCLEROSIS
     Dosage: 44 MCG, 3 IN 1 WEEKS, SUBCUTANEOUS
     Route: 058
     Dates: start: 20071109

REACTIONS (7)
  - ABASIA [None]
  - BEDRIDDEN [None]
  - FALL [None]
  - LIMB INJURY [None]
  - OEDEMA PERIPHERAL [None]
  - SENSORY LOSS [None]
  - WHEELCHAIR USER [None]
